FAERS Safety Report 9744878 (Version 2)
Quarter: 2014Q1

REPORT INFORMATION
  Report Type: Spontaneous
  Country: US (occurrence: US)
  Receive Date: 20131211
  Receipt Date: 20140101
  Transmission Date: 20141002
  Serious: Yes (Hospitalization)
  Sender: FDA-Public Use
  Company Number: US-AMGEN-USASP2013086621

PATIENT
  Age: 58 Year
  Sex: Female
  Weight: 150.1 kg

DRUGS (4)
  1. VECTIBIX [Suspect]
     Indication: COLORECTAL CANCER METASTATIC
     Dosage: UNK
     Route: 042
  2. VECTIBIX [Suspect]
     Dosage: UNK
     Route: 042
  3. VECTIBIX [Suspect]
     Dosage: UNK
     Route: 042
  4. VECTIBIX [Suspect]
     Dosage: UNK
     Route: 042

REACTIONS (2)
  - Atrial fibrillation [Unknown]
  - Blood magnesium decreased [Unknown]
